FAERS Safety Report 5350389-4 (Version None)
Quarter: 2007Q2

REPORT INFORMATION
  Report Type: 
  Country: None (occurrence: None)
  Receive Date: 20070606
  Receipt Date: 20070606
  Transmission Date: 20071010
  Serious: Yes (Other)
  Sender: FDA-Public Use
  Company Number: None

PATIENT
  Sex: Male
  Weight: 76.2043 kg

DRUGS (1)
  1. SEPTRA DS [Suspect]
     Indication: CELLULITIS
     Dosage: TAKE ONE TAB BY MOUTH TWICE A DAY
     Route: 048
     Dates: start: 20070525

REACTIONS (1)
  - DERMATITIS [None]
